FAERS Safety Report 24568783 (Version 1)
Quarter: 2024Q4

REPORT INFORMATION
  Report Type: Report from Study
  Country: GB (occurrence: GB)
  Receive Date: 20241031
  Receipt Date: 20241031
  Transmission Date: 20250114
  Serious: Yes (Other)
  Sender: CELLTRION
  Company Number: GB-CELLTRION INC.-2023GB022821

PATIENT

DRUGS (3)
  1. INFLIXIMAB-DYYB [Suspect]
     Active Substance: INFLIXIMAB-DYYB
     Indication: Crohn^s disease
     Dosage: 120 MILLIGRAM PRE FILLED PEN
     Route: 058
     Dates: start: 202309
  2. INFLIXIMAB-DYYB [Suspect]
     Active Substance: INFLIXIMAB-DYYB
     Dosage: SHE SELF-INJECTED 2 WEEKS AGO
     Route: 058
  3. INFLIXIMAB-DYYB [Suspect]
     Active Substance: INFLIXIMAB-DYYB
     Dosage: 120 MG PRE FILLED PEN PK2
     Route: 058
     Dates: start: 20241018

REACTIONS (8)
  - Crohn^s disease [Unknown]
  - Mobility decreased [Unknown]
  - Skin abrasion [Unknown]
  - Discharge [Unknown]
  - Oropharyngeal pain [Unknown]
  - Nasopharyngitis [Unknown]
  - Abscess [Unknown]
  - Intentional dose omission [Unknown]
